FAERS Safety Report 25115810 (Version 1)
Quarter: 2025Q1

REPORT INFORMATION
  Report Type: Spontaneous
  Country: US (occurrence: US)
  Receive Date: 20250325
  Receipt Date: 20250325
  Transmission Date: 20250409
  Serious: No
  Sender: ELI LILLY AND COMPANY
  Company Number: US-ELI_LILLY_AND_COMPANY-US202503009590

PATIENT
  Age: 56 Year
  Sex: Female

DRUGS (4)
  1. MOUNJARO [Suspect]
     Active Substance: TIRZEPATIDE
     Indication: Product used for unknown indication
     Route: 065
  2. MOUNJARO [Suspect]
     Active Substance: TIRZEPATIDE
     Indication: Product used for unknown indication
     Route: 065
  3. MOUNJARO [Suspect]
     Active Substance: TIRZEPATIDE
     Indication: Product used for unknown indication
     Route: 065
  4. MOUNJARO [Suspect]
     Active Substance: TIRZEPATIDE
     Indication: Product used for unknown indication
     Route: 065

REACTIONS (10)
  - Tooth infection [Unknown]
  - Tooth loss [Unknown]
  - Dental restoration failure [Unknown]
  - Lymphadenitis [Unknown]
  - Ocular hyperaemia [Unknown]
  - Hot flush [Unknown]
  - Headache [Unknown]
  - Cough [Unknown]
  - Dizziness postural [Unknown]
  - Nausea [Unknown]

NARRATIVE: CASE EVENT DATE: 20250311
